FAERS Safety Report 23576247 (Version 1)
Quarter: 2024Q1

REPORT INFORMATION
  Report Type: Spontaneous
  Country: US (occurrence: None)
  Receive Date: 20240228
  Receipt Date: 20240228
  Transmission Date: 20240410
  Serious: Yes (Other)
  Sender: FDA-Public Use
  Company Number: 2024A044148

PATIENT

DRUGS (2)
  1. IMFINZI [Suspect]
     Active Substance: DURVALUMAB
     Dosage: UNKNOWN
  2. IMJUDO [Suspect]
     Active Substance: TREMELIMUMAB\TREMELIMUMAB-ACTL
     Dosage: UNKNOWN
     Route: 042

REACTIONS (4)
  - Immune system disorder [Unknown]
  - Gastrointestinal inflammation [Unknown]
  - Pancreatitis [Unknown]
  - Colitis [Unknown]
